FAERS Safety Report 4600372-9 (Version None)
Quarter: 2005Q1

REPORT INFORMATION
  Report Type: 
  Country: None (occurrence: None)
  Receive Date: 20050303
  Receipt Date: 20050216
  Transmission Date: 20050727
  Serious: Yes (Hospitalization, Other)
  Sender: FDA-Public Use
  Company Number: US_0502113224

PATIENT
  Age: 59 Year
  Sex: Female

DRUGS (3)
  1. HUMALOG [Suspect]
     Dosage: 10 U/3 DAY
  2. LANTUS [Concomitant]
  3. NOVOLIN (INSULIN HUMAN INJECTION, ISOPHANE) [Concomitant]

REACTIONS (8)
  - ASTHENIA [None]
  - BLADDER DISORDER [None]
  - CARDIAC OPERATION [None]
  - KNEE ARTHROPLASTY [None]
  - MEDICAL DEVICE COMPLICATION [None]
  - NEPHROLITHIASIS [None]
  - PHARMACEUTICAL PRODUCT COMPLAINT [None]
  - STRESS [None]
